FAERS Safety Report 4674931-1 (Version None)
Quarter: 2005Q2

REPORT INFORMATION
  Report Type: 
  Country: None (occurrence: None)
  Receive Date: 20050525
  Receipt Date: 20050516
  Transmission Date: 20051028
  Serious: Yes (Death, Disabling, Other)
  Sender: FDA-Public Use
  Company Number: 2004031173

PATIENT
  Sex: 0

DRUGS (3)
  1. NEURONTIN [Suspect]
     Indication: ANXIETY
     Dates: start: 20000101, end: 20020401
  2. NEURONTIN [Suspect]
     Indication: BIPOLAR DISORDER
     Dates: start: 20000101, end: 20020401
  3. NEURONTIN [Suspect]
     Indication: DEPRESSION
     Dates: start: 20000101, end: 20020401

REACTIONS (8)
  - ABNORMAL BEHAVIOUR [None]
  - ANHEDONIA [None]
  - ANXIETY [None]
  - EMOTIONAL DISORDER [None]
  - MENTAL DISORDER [None]
  - PAIN [None]
  - PHARMACEUTICAL PRODUCT COMPLAINT [None]
  - POLYTRAUMATISM [None]
